FAERS Safety Report 6794765-1 (Version None)
Quarter: 2010Q2

REPORT INFORMATION
  Report Type: 
  Country: None (occurrence: None)
  Receive Date: 20100625
  Receipt Date: 20100614
  Transmission Date: 20101027
  Serious: Yes (Hospitalization)
  Sender: FDA-Public Use
  Company Number: US-BRISTOL-MYERS SQUIBB COMPANY-15148844

PATIENT
  Age: 79 Year
  Sex: Female

DRUGS (3)
  1. CEFEPIME [Suspect]
     Indication: SEPSIS
     Route: 042
  2. TOBRAMYCIN SULFATE [Suspect]
     Indication: SEPSIS
  3. VANCOMYCIN [Suspect]
     Indication: SEPSIS

REACTIONS (1)
  - STATUS EPILEPTICUS [None]
